FAERS Safety Report 18111751 (Version 3)
Quarter: 2020Q3

REPORT INFORMATION
  Report Type: Report from Study
  Country: AU (occurrence: AU)
  Receive Date: 20200805
  Receipt Date: 20200915
  Transmission Date: 20201103
  Serious: Yes (Other)
  Sender: FDA-Public Use
  Company Number: AU-REGENERON PHARMACEUTICALS, INC.-2020-58616

PATIENT

DRUGS (2)
  1. EYLEA [Suspect]
     Active Substance: AFLIBERCEPT
     Indication: NEOVASCULAR AGE-RELATED MACULAR DEGENERATION
     Dosage: LAST  EYLEA INJECTION TO THE RIGHT EYE
     Route: 031
     Dates: start: 20180625, end: 20180625
  2. EYLEA [Suspect]
     Active Substance: AFLIBERCEPT
     Dosage: UNK, Q3MON, UNKNOWN DOSE, TOTAL NUMBER OF INJECTIONS
     Route: 031
     Dates: start: 20180822

REACTIONS (6)
  - Eye infection [Unknown]
  - Central vision loss [Unknown]
  - Blindness unilateral [Unknown]
  - Macular degeneration [Unknown]
  - Visual impairment [Unknown]
  - Ectropion [Unknown]
